FAERS Safety Report 13501790 (Version 1)
Quarter: 2017Q2

REPORT INFORMATION
  Report Type: Spontaneous
  Country: US (occurrence: US)
  Receive Date: 20170502
  Receipt Date: 20170502
  Transmission Date: 20170830
  Serious: No
  Sender: FDA-Public Use
  Company Number: PHEH2017US012378

PATIENT
  Sex: Female

DRUGS (4)
  1. DUREZOL [Suspect]
     Active Substance: DIFLUPREDNATE
     Indication: PRODUCT USED FOR UNKNOWN INDICATION
     Dosage: UNK, QID
     Route: 047
     Dates: start: 20170403
  2. VITAMIN D [Concomitant]
     Active Substance: CHOLECALCIFEROL
     Indication: PRODUCT USED FOR UNKNOWN INDICATION
     Route: 065
  3. FISH OIL [Concomitant]
     Active Substance: FISH OIL
     Indication: PRODUCT USED FOR UNKNOWN INDICATION
     Route: 065
  4. DUREZOL [Suspect]
     Active Substance: DIFLUPREDNATE
     Dosage: UNK, TID
     Route: 047

REACTIONS (1)
  - Eye pain [Unknown]
